FAERS Safety Report 7367526-2 (Version None)
Quarter: 2011Q1

REPORT INFORMATION
  Report Type: 
  Country: None (occurrence: None)
  Receive Date: 20110322
  Receipt Date: 20100927
  Transmission Date: 20110831
  Serious: Yes (Hospitalization)
  Sender: FDA-Public Use
  Company Number: US-BAYER-201027877NA

PATIENT
  Sex: Female
  Weight: 78.458 kg

DRUGS (10)
  1. YASMIN [Suspect]
     Indication: CONTRACEPTION
     Route: 048
     Dates: start: 20070904, end: 20071005
  2. ALEVE [Concomitant]
     Indication: MIGRAINE
  3. YASMIN [Suspect]
     Indication: ACNE
  4. TYLOX [Concomitant]
  5. ADDERALL 10 [Concomitant]
     Indication: ATTENTION DEFICIT/HYPERACTIVITY DISORDER
     Dosage: UNK
     Dates: start: 19980101, end: 20080101
  6. PHENERGAN [Concomitant]
  7. NSAID'S [Concomitant]
     Indication: MIGRAINE
     Dosage: UNK
     Dates: start: 20010101
  8. RITALIN [Concomitant]
     Indication: ATTENTION DEFICIT/HYPERACTIVITY DISORDER
     Dosage: UNK
     Dates: start: 19980101, end: 20080101
  9. YAZ [Suspect]
     Indication: CONTRACEPTION
     Route: 048
     Dates: start: 20071005, end: 20080815
  10. YAZ [Suspect]
     Indication: ACNE

REACTIONS (4)
  - DEEP VEIN THROMBOSIS [None]
  - NECK PAIN [None]
  - INTRACRANIAL VENOUS SINUS THROMBOSIS [None]
  - VITH NERVE PARALYSIS [None]
